FAERS Safety Report 21006321 (Version 1)
Quarter: 2022Q2

REPORT INFORMATION
  Report Type: Spontaneous
  Country: JP (occurrence: JP)
  Receive Date: 20220624
  Receipt Date: 20220624
  Transmission Date: 20220721
  Serious: Yes (Hospitalization, Other)
  Sender: FDA-Public Use
  Company Number: JP-MLMSERVICE-20220614-3614774-1

PATIENT
  Age: 51 Year
  Sex: Male

DRUGS (9)
  1. DEXAMETHASONE [Suspect]
     Active Substance: DEXAMETHASONE
     Indication: Organising pneumonia
     Route: 065
     Dates: start: 202009, end: 20210223
  2. PREDNISONE [Suspect]
     Active Substance: PREDNISONE
     Indication: Organising pneumonia
     Dosage: DOSE WAS REDUCED
     Route: 065
     Dates: start: 2020
  3. PREDNISONE [Suspect]
     Active Substance: PREDNISONE
     Indication: COVID-19
     Dosage: RESTARTED
     Route: 065
     Dates: start: 20200929, end: 2020
  4. PREDNISONE [Suspect]
     Active Substance: PREDNISONE
     Dosage: DOSE REDUCED
     Route: 065
     Dates: start: 202011
  5. PREDNISONE [Suspect]
     Active Substance: PREDNISONE
     Dosage: DOSE INCREASED
     Route: 065
     Dates: start: 202010
  6. PREDNISONE [Suspect]
     Active Substance: PREDNISONE
     Dosage: TAPERED THE DOSE
     Route: 065
     Dates: end: 20210223
  7. RITUXIMAB [Suspect]
     Active Substance: RITUXIMAB
     Indication: Non-Hodgkin^s lymphoma
     Route: 065
     Dates: end: 202006
  8. OXYGEN [Concomitant]
     Active Substance: OXYGEN
     Indication: COVID-19
     Route: 065
  9. OXYGEN [Concomitant]
     Active Substance: OXYGEN
     Indication: Organising pneumonia

REACTIONS (3)
  - Secondary immunodeficiency [Recovered/Resolved]
  - COVID-19 [Recovered/Resolved]
  - Disease progression [Recovered/Resolved]

NARRATIVE: CASE EVENT DATE: 20200907
